FAERS Safety Report 7727111-7 (Version None)
Quarter: 2011Q3

REPORT INFORMATION
  Report Type: 
  Country: None (occurrence: None)
  Receive Date: 20110902
  Receipt Date: 20110826
  Transmission Date: 20111222
  Serious: Yes (Other)
  Sender: FDA-Public Use
  Company Number: FR-B.I. PHARMACEUTICALS,INC./RIDGEFIELD-2011-FF-00792FF

PATIENT
  Sex: Male

DRUGS (14)
  1. MICARDIS [Suspect]
     Indication: CONGESTIVE CARDIOMYOPATHY
     Dosage: 80 MG
     Route: 048
     Dates: end: 20101105
  2. DIGOXIN [Concomitant]
     Indication: CONGESTIVE CARDIOMYOPATHY
     Dosage: 0.25 MG
     Route: 048
     Dates: end: 20101105
  3. ASPIRIN [Concomitant]
     Indication: CONGESTIVE CARDIOMYOPATHY
     Dosage: 160 MG
  4. ALLOPURINOL [Suspect]
     Indication: GOUT
     Dosage: 200 MG
     Route: 048
     Dates: start: 20100731, end: 20101030
  5. FUROSEMIDE [Concomitant]
     Indication: CONGESTIVE CARDIOMYOPATHY
     Dosage: 40 MG
     Route: 048
     Dates: end: 20101105
  6. CORTICOSTEROID NOS [Concomitant]
  7. OXACILLIN [Concomitant]
     Dates: start: 20101101, end: 20101113
  8. GENTAMICINE PANPHARMA [Suspect]
     Indication: STAPHYLOCOCCAL SEPSIS
     Dosage: 380 MG
     Route: 042
     Dates: start: 20101031, end: 20101101
  9. INSPRA [Suspect]
     Indication: CONGESTIVE CARDIOMYOPATHY
     Dosage: 25 MG
     Route: 048
     Dates: end: 20101111
  10. GENTAMICINE PANPHARMA [Suspect]
     Dosage: 450 MG
     Route: 042
     Dates: start: 20101102, end: 20101104
  11. BISOPROLOL FUMARATE [Concomitant]
     Indication: CONGESTIVE CARDIOMYOPATHY
     Dosage: 15 MG
     Route: 048
  12. VANCOCIN HYDROCHLORIDE [Suspect]
     Indication: STAPHYLOCOCCAL SEPSIS
     Dosage: 750 MG
     Route: 042
     Dates: start: 20101031, end: 20101101
  13. PYRAZINAMIDE [Concomitant]
  14. SIMVASTATIN [Concomitant]

REACTIONS (9)
  - TYPE 2 DIABETES MELLITUS [None]
  - TUBERCULOSIS [None]
  - DRUG RASH WITH EOSINOPHILIA AND SYSTEMIC SYMPTOMS [None]
  - MYALGIA [None]
  - STAPHYLOCOCCAL SEPSIS [None]
  - GOUT [None]
  - BLOOD CREATINE PHOSPHOKINASE INCREASED [None]
  - RENAL FAILURE ACUTE [None]
  - LEUKOCYTURIA [None]
